FAERS Safety Report 21460376 (Version 2)
Quarter: 2022Q4

REPORT INFORMATION
  Report Type: Spontaneous
  Country: JP (occurrence: JP)
  Receive Date: 20221014
  Receipt Date: 20221019
  Transmission Date: 20230113
  Serious: Yes (Other)
  Sender: FDA-Public Use
  Company Number: JP-MALLINCKRODT-T202205353

PATIENT

DRUGS (1)
  1. NITRIC OXIDE [Suspect]
     Active Substance: NITRIC OXIDE
     Indication: Pulmonary hypertension
     Dosage: UNK (INHALATION)
     Route: 055

REACTIONS (4)
  - Delirium [Unknown]
  - Nervous system disorder [Unknown]
  - Exploratory operation [Unknown]
  - Post procedural haemorrhage [Unknown]
